FAERS Safety Report 5481326-X (Version None)
Quarter: 2007Q4

REPORT INFORMATION
  Report Type: 
  Country: None (occurrence: None)
  Receive Date: 20071010
  Receipt Date: 20071001
  Transmission Date: 20080405
  Serious: Yes (Hospitalization)
  Sender: FDA-Public Use
  Company Number: FR-BAYER-200710526BFR

PATIENT
  Age: 70 Year
  Sex: Male
  Weight: 80 kg

DRUGS (3)
  1. IZILOX [Suspect]
     Indication: LUNG DISORDER
     Dosage: TOTAL DAILY DOSE: 400 MG  UNIT DOSE: 400 MG
     Route: 048
     Dates: start: 20070703, end: 20070717
  2. COTAREG [Concomitant]
     Indication: HYPERTENSION
  3. CIRKAN [Concomitant]
     Indication: UNEVALUABLE EVENT

REACTIONS (4)
  - ANAEMIA [None]
  - DYSPEPSIA [None]
  - HENOCH-SCHONLEIN PURPURA [None]
  - RENAL FAILURE [None]
